FAERS Safety Report 8968237 (Version 2)
Quarter: 2013Q1

REPORT INFORMATION
  Report Type: Spontaneous
  Country: IT (occurrence: IT)
  Receive Date: 20121217
  Receipt Date: 20130222
  Transmission Date: 20140127
  Serious: Yes (Other)
  Sender: FDA-Public Use
  Company Number: IT-ROCHE-1169214

PATIENT
  Age: 52 Year
  Sex: Male

DRUGS (1)
  1. ROCEFIN [Suspect]
     Indication: ANTIBIOTIC THERAPY
     Route: 030
     Dates: start: 20120717, end: 20120717

REACTIONS (2)
  - Dyspnoea [Recovering/Resolving]
  - Paraesthesia [Recovering/Resolving]
